FAERS Safety Report 4320352-0 (Version None)
Quarter: 2004Q1

REPORT INFORMATION
  Report Type: 
  Country: None (occurrence: None)
  Receive Date: 20040317
  Receipt Date: 20040312
  Transmission Date: 20041129
  Serious: Yes (Hospitalization, Other)
  Sender: FDA-Public Use
  Company Number: USA-2004-0013760

PATIENT
  Age: 39 Year
  Sex: Male

DRUGS (2)
  1. MORPHINE SULFATE [Suspect]
     Indication: PAIN
     Dosage: 100 MG, SEE TEXT, ORAL
     Route: 048
     Dates: start: 19971215
  2. FLURAZEPAM [Suspect]
     Dosage: TABLET

REACTIONS (10)
  - AZOTAEMIA [None]
  - DRUG ABUSER [None]
  - DRUG INEFFECTIVE [None]
  - FEMORAL PULSE DECREASED [None]
  - HAEMODIALYSIS [None]
  - INTERVERTEBRAL DISC PROTRUSION [None]
  - OVERDOSE [None]
  - RENAL FAILURE ACUTE [None]
  - RHABDOMYOLYSIS [None]
  - SPINAL CORD DISORDER [None]
